FAERS Safety Report 9701311 (Version 1)
Quarter: 2013Q4

REPORT INFORMATION
  Report Type: Spontaneous
  Country: US (occurrence: US)
  Receive Date: 20131121
  Receipt Date: 20131121
  Transmission Date: 20140711
  Serious: No
  Sender: FDA-Public Use
  Company Number: US-GILEAD-2008-0016428

PATIENT
  Sex: Female

DRUGS (1)
  1. LETAIRIS [Suspect]

REACTIONS (4)
  - Oxygen saturation decreased [None]
  - Hypoxia [None]
  - Oedema [None]
  - Fluid retention [None]
